FAERS Safety Report 14819944 (Version 1)
Quarter: 2018Q2

REPORT INFORMATION
  Report Type: Report from Study
  Country: US (occurrence: US)
  Receive Date: 20180427
  Receipt Date: 20180427
  Transmission Date: 20180711
  Serious: Yes (Hospitalization)
  Sender: FDA-Public Use
  Company Number: US-PFIZER INC-2018137216

PATIENT
  Age: 85 Year
  Sex: Female

DRUGS (1)
  1. SUTENT [Suspect]
     Active Substance: SUNITINIB MALATE
     Indication: RENAL CELL CARCINOMA
     Dosage: 37.5 MG, CYCLIC (DAILY/2 WEEKS ON AND 1 WEEK OFF)
     Route: 048
     Dates: start: 20180328, end: 20180420

REACTIONS (8)
  - Platelet count decreased [Unknown]
  - Hypertension [Recovering/Resolving]
  - Reflux gastritis [Not Recovered/Not Resolved]
  - Heart rate irregular [Unknown]
  - Stomatitis [Unknown]
  - Fatigue [Not Recovered/Not Resolved]
  - Condition aggravated [Not Recovered/Not Resolved]
  - Asthenia [Unknown]

NARRATIVE: CASE EVENT DATE: 2018
